FAERS Safety Report 4802723-9 (Version None)
Quarter: 2005Q4

REPORT INFORMATION
  Report Type: 
  Country: None (occurrence: None)
  Receive Date: 20051014
  Receipt Date: 20041012
  Transmission Date: 20060501
  Serious: Yes (Disabling)
  Sender: FDA-Public Use
  Company Number: 2004052106

PATIENT
  Age: 57 Year
  Sex: Female

DRUGS (18)
  1. NEURONTIN [Suspect]
     Indication: ARTHRALGIA
     Dosage: 1200 MG (300 MG, 4 IN 1 D), ORAL
     Route: 048
     Dates: start: 20040130, end: 20040430
  2. NAPROXEN [Suspect]
     Indication: ILL-DEFINED DISORDER
  3. METFORMIN HCL [Concomitant]
  4. QUINAPRIL HCL [Concomitant]
  5. PRAVASTATIN [Concomitant]
  6. QUININE SULFATE [Concomitant]
  7. CETIRIZINE HCL [Concomitant]
  8. ALPRAZOLAM [Concomitant]
  9. CALCIUM (CALCIUM) [Concomitant]
  10. MAGNESIUM (MAGNESIUM) [Concomitant]
  11. BEMINAL WITH C FORTIS (ASCORBIC ACID, CALCIUM PANTOTHENATE, CYANOCOBAL [Concomitant]
  12. EVENING PRIMROSE OIL (EVENING PRIMROSE OIL) [Concomitant]
  13. LINSEED OIL (LINSEED OIL) [Concomitant]
  14. ZINC (ZINC) [Concomitant]
  15. CHONDROITIN/GLUCOSAMINE (CHONDROITIN, GLUCOSAMINE) [Concomitant]
  16. CELECOXIB (CELECOXIB) [Concomitant]
  17. VITAMINS (VITAMINS) [Concomitant]
  18. ALL OTHER THERAPEUTIC PRODUCTS (ALL OTHER THERAPEUTIC PRODUCTS) [Concomitant]

REACTIONS (4)
  - ARTHRALGIA [None]
  - BALANCE DISORDER [None]
  - DIZZINESS [None]
  - FALL [None]
